FAERS Safety Report 4590380-9 (Version None)
Quarter: 2005Q1

REPORT INFORMATION
  Report Type: 
  Country: None (occurrence: None)
  Receive Date: 20050224
  Receipt Date: 20041223
  Transmission Date: 20050727
  Serious: Yes (Other)
  Sender: FDA-Public Use
  Company Number: DE-MERCK-0412DEU00214

PATIENT
  Age: 55 Year
  Sex: Female
  Weight: 119 kg

DRUGS (5)
  1. VIOXX [Suspect]
     Indication: SPINAL OSTEOARTHRITIS
     Route: 048
     Dates: start: 20000501, end: 20041001
  2. SOTALOL HYDROCHLORIDE [Suspect]
     Route: 065
     Dates: start: 20000801, end: 20000801
  3. IBUPROFEN [Concomitant]
     Route: 065
  4. TRIMIPRAMINE [Concomitant]
     Route: 065
  5. INDOMETHACIN [Concomitant]
     Route: 065

REACTIONS (10)
  - AORTIC ANEURYSM [None]
  - AORTIC VALVE INCOMPETENCE [None]
  - CARDIAC DISORDER [None]
  - FLUID RETENTION [None]
  - HYPOTENSION [None]
  - INTESTINAL HAEMORRHAGE [None]
  - RESPIRATORY TRACT INFECTION [None]
  - SLEEP APNOEA SYNDROME [None]
  - SUPRAVENTRICULAR EXTRASYSTOLES [None]
  - WEIGHT INCREASED [None]
